FAERS Safety Report 9041158 (Version 1)
Quarter: 2013Q1

REPORT INFORMATION
  Report Type: Spontaneous
  Country: US (occurrence: None)
  Receive Date: 20130114
  Receipt Date: 20130114
  Transmission Date: 20140127
  Serious: Yes (Hospitalization)
  Sender: FDA-Public Use
  Company Number: 1301-025

PATIENT
  Age: 80 Year
  Sex: Female
  Weight: 58.97 kg

DRUGS (7)
  1. EYLEA (AFLIBERCEPT) (INJECTION) (AFLIBERCEPT) [Suspect]
     Dosage: INTRAVITREAL
     Route: 031
     Dates: start: 20121115
  2. HYDROCHLOROTHIAZIDE (HYDROCHLOROTHIAZIDE)(TABLET [Concomitant]
  3. CARVEDILOL (CARVEDILOL) [Concomitant]
  4. PRESERVISION (OCUVITE LUTEIN /06812801/) [Concomitant]
  5. INDAPAMIDE (INDAPAMIDE) [Concomitant]
  6. LISINOPRIL (LISINOPRIL) [Concomitant]
  7. UNKNOWN HYPERTENSIVE [Concomitant]

REACTIONS (2)
  - Back pain [None]
  - Blood pressure increased [None]
